FAERS Safety Report 12105596 (Version 1)
Quarter: 2016Q1

REPORT INFORMATION
  Report Type: Spontaneous
  Country: US (occurrence: US)
  Receive Date: 20160223
  Receipt Date: 20160223
  Transmission Date: 20160526
  Serious: Yes (Hospitalization, Other)
  Sender: FDA-Public Use
  Company Number: US-CELGENEUS-USA-2016023453

PATIENT
  Sex: Male

DRUGS (2)
  1. REVLIMID [Suspect]
     Active Substance: LENALIDOMIDE
     Route: 048
     Dates: start: 201602
  2. REVLIMID [Suspect]
     Active Substance: LENALIDOMIDE
     Indication: PLASMA CELL MYELOMA
     Route: 048
     Dates: start: 201601

REACTIONS (8)
  - Liver disorder [Unknown]
  - Asthenia [Unknown]
  - Weight increased [Unknown]
  - Platelet count decreased [Unknown]
  - Tremor [Unknown]
  - Visual impairment [Unknown]
  - Tachyphrenia [Unknown]
  - Insomnia [Unknown]
